FAERS Safety Report 8227266-4 (Version None)
Quarter: 2012Q1

REPORT INFORMATION
  Report Type: 
  Country: None (occurrence: None)
  Receive Date: 20120322
  Receipt Date: 20120314
  Transmission Date: 20120608
  Serious: Yes (Other)
  Sender: FDA-Public Use
  Company Number: PHHY2012JP011373

PATIENT
  Age: 63 Year
  Sex: Male

DRUGS (2)
  1. DIOVAN [Suspect]
     Indication: HYPERTENSION
     Route: 048
  2. NIFEDIPINE [Suspect]
     Indication: HYPERTENSION
     Route: 048

REACTIONS (6)
  - GINGIVAL RECESSION [None]
  - GINGIVAL SWELLING [None]
  - LOOSE TOOTH [None]
  - GINGIVAL PAIN [None]
  - TOOTH RESORPTION [None]
  - GINGIVAL HYPERPLASIA [None]
